FAERS Safety Report 7186891-2 (Version None)
Quarter: 2010Q4

REPORT INFORMATION
  Report Type: 
  Country: None (occurrence: None)
  Receive Date: 20101222
  Receipt Date: 20101215
  Transmission Date: 20110411
  Serious: Yes (Other)
  Sender: FDA-Public Use
  Company Number: FR-GILEAD-2010-0034495

PATIENT
  Sex: Female
  Weight: 60 kg

DRUGS (5)
  1. TRUVADA [Suspect]
     Indication: HIV INFECTION
     Dates: start: 20101005
  2. KALETRA [Concomitant]
     Dates: start: 20101005
  3. UVEDOSE [Concomitant]
  4. TARDYFERON [Concomitant]
  5. AZT [Concomitant]

REACTIONS (2)
  - FOETAL DISTRESS SYNDROME [None]
  - PREGNANCY [None]
